FAERS Safety Report 7564912-2 (Version None)
Quarter: 2011Q2

REPORT INFORMATION
  Report Type: 
  Country: None (occurrence: None)
  Receive Date: 20110622
  Receipt Date: 20110324
  Transmission Date: 20111010
  Serious: Yes (Death)
  Sender: FDA-Public Use
  Company Number: US-MYLANLABS-2011S1003207

PATIENT
  Age: 63 Year
  Sex: Female
  Weight: 99.79 kg

DRUGS (11)
  1. DILTIAZEM [Concomitant]
  2. OMEPRAZOLE [Concomitant]
  3. POTASSIUM [Concomitant]
  4. LEVOTHYROXINE SODIUM [Concomitant]
     Indication: HYPOTHYROIDISM
  5. FUROSEMIDE [Concomitant]
  6. METOLAZONE [Concomitant]
  7. PREDNISONE [Concomitant]
  8. ZYPREXA [Concomitant]
  9. CLOZAPINE [Suspect]
     Indication: SCHIZOPHRENIA, PARANOID TYPE
     Dosage: PATIENT TAKES 200MG EVERY MORNING AND 250MG EVERY EVENING.
     Route: 048
  10. CLOZAPINE [Suspect]
     Dosage: PATIENT TAKES 200MG EVERY MORNING AND 250MG EVERY EVENING.
     Route: 048
  11. DEPAKOTE [Concomitant]

REACTIONS (3)
  - PNEUMONIA [None]
  - MYOCARDIAL INFARCTION [None]
  - CARDIAC FAILURE CONGESTIVE [None]
